FAERS Safety Report 6927720-9 (Version None)
Quarter: 2010Q3

REPORT INFORMATION
  Report Type: 
  Country: None (occurrence: None)
  Receive Date: 20100817
  Receipt Date: 20100809
  Transmission Date: 20110219
  Serious: Yes (Other)
  Sender: FDA-Public Use
  Company Number: CN-JNJFOC-20100803110

PATIENT
  Age: 30 Year
  Sex: Female

DRUGS (2)
  1. SPORANOX [Suspect]
     Indication: ONYCHOMYCOSIS
     Route: 048
  2. ALL OTHER THERAPEUTIC PRODUCT [Concomitant]
     Route: 065

REACTIONS (4)
  - ABDOMINAL PAIN LOWER [None]
  - CHEST DISCOMFORT [None]
  - DYSPNOEA [None]
  - ERUCTATION [None]
